FAERS Safety Report 23289327 (Version 1)
Quarter: 2023Q4

REPORT INFORMATION
  Report Type: Spontaneous
  Country: US (occurrence: None)
  Receive Date: 20231211
  Receipt Date: 20231211
  Transmission Date: 20240109
  Serious: Yes (Hospitalization)
  Sender: FDA-Public Use
  Company Number: None

PATIENT
  Sex: Male

DRUGS (5)
  1. PREDNISONE [Suspect]
     Active Substance: PREDNISONE
     Indication: Colitis ulcerative
     Dosage: OTHER FREQUENCY : UNKNOWN;?
     Route: 065
  2. FOLIC ACID [Concomitant]
     Active Substance: FOLIC ACID
  3. IRON [Concomitant]
     Active Substance: IRON
  4. HYDREA [Concomitant]
     Active Substance: HYDROXYUREA
  5. RINVOQ [Suspect]
     Active Substance: UPADACITINIB

REACTIONS (9)
  - Rash [None]
  - Blister [None]
  - Pruritus [None]
  - Skin irritation [None]
  - Pustule [None]
  - Sickle cell anaemia with crisis [None]
  - Pyrexia [None]
  - Decreased appetite [None]
  - Therapy interrupted [None]
